FAERS Safety Report 5128225-0 (Version None)
Quarter: 2006Q4

REPORT INFORMATION
  Report Type: 
  Country: None (occurrence: None)
  Receive Date: 20061011
  Receipt Date: 20060928
  Transmission Date: 20070319
  Serious: Yes (Death, Other)
  Sender: FDA-Public Use
  Company Number: 2006118719

PATIENT
  Age: 50 Year
  Sex: Male

DRUGS (1)
  1. PHENYTOIN SODIUM CAP [Suspect]
     Dosage: 90MG/5ML, ORAL
     Route: 048
     Dates: start: 20060101

REACTIONS (1)
  - DYSPHAGIA [None]
